FAERS Safety Report 15365721 (Version 2)
Quarter: 2018Q4

REPORT INFORMATION
  Report Type: Spontaneous
  Country: US (occurrence: US)
  Receive Date: 20180910
  Receipt Date: 20181019
  Transmission Date: 20190204
  Serious: No
  Sender: FDA-Public Use
  Company Number: US-ASTRAZENECA-2018SF08726

PATIENT
  Sex: Female
  Weight: 72.1 kg

DRUGS (4)
  1. FARXIGA [Suspect]
     Active Substance: DAPAGLIFLOZIN PROPANEDIOL
     Indication: HYPERGLYCAEMIA
     Dosage: 10.0MG UNKNOWN
     Route: 048
     Dates: start: 201806
  2. FARXIGA [Suspect]
     Active Substance: DAPAGLIFLOZIN PROPANEDIOL
     Indication: HYPERGLYCAEMIA
     Dosage: 5.0MG UNKNOWN
     Route: 048
  3. FARXIGA [Suspect]
     Active Substance: DAPAGLIFLOZIN PROPANEDIOL
     Indication: HYPERGLYCAEMIA
     Dosage: 5.0MG UNKNOWN
     Route: 048
     Dates: start: 201805
  4. FARXIGA [Suspect]
     Active Substance: DAPAGLIFLOZIN PROPANEDIOL
     Indication: HYPERGLYCAEMIA
     Dosage: 10.0MG UNKNOWN
     Route: 048

REACTIONS (6)
  - Paraesthesia [Unknown]
  - Blood glucose increased [Unknown]
  - Alopecia [Unknown]
  - Hair texture abnormal [Unknown]
  - Pruritus [Unknown]
  - Pain of skin [Unknown]
